FAERS Safety Report 20686098 (Version 1)
Quarter: 2022Q2

REPORT INFORMATION
  Report Type: Spontaneous
  Country: FR (occurrence: FR)
  Receive Date: 20220407
  Receipt Date: 20220407
  Transmission Date: 20220721
  Serious: No
  Sender: FDA-Public Use
  Company Number: None

PATIENT

DRUGS (1)
  1. SUNOSI [Suspect]
     Active Substance: SOLRIAMFETOL
     Indication: Narcolepsy
     Dosage: 37.5 MILLIGRAM, QD (GRADUAL INCREASE: 0.5 TABLETS FOR 1 WEEK, 1 TABLET FOR 1 WEEK THEN 150 MG/DAY)
     Route: 048
     Dates: start: 20210503

REACTIONS (1)
  - Chest pain [Not Recovered/Not Resolved]

NARRATIVE: CASE EVENT DATE: 20210504
